FAERS Safety Report 13653588 (Version 2)
Quarter: 2017Q3

REPORT INFORMATION
  Report Type: Spontaneous
  Country: US (occurrence: US)
  Receive Date: 20170614
  Receipt Date: 20170911
  Transmission Date: 20171127
  Serious: No
  Sender: FDA-Public Use
  Company Number: US-SHIRE-US201713128

PATIENT
  Sex: Female
  Weight: 56.24 kg

DRUGS (1)
  1. XIIDRA [Suspect]
     Active Substance: LIFITEGRAST
     Indication: DRY EYE
     Dosage: 1 GTT, 2X/DAY:BID (IN BOTH EYES)
     Route: 047
     Dates: start: 201705, end: 20170506

REACTIONS (9)
  - Seasonal allergy [Recovered/Resolved]
  - Product quality issue [Recovered/Resolved]
  - Ocular discomfort [Recovered/Resolved]
  - Instillation site discharge [Recovered/Resolved]
  - Instillation site pain [Recovered/Resolved]
  - Drug ineffective [Recovered/Resolved]
  - Instillation site reaction [Recovered/Resolved]
  - Dysgeusia [Recovered/Resolved]
  - Condition aggravated [Recovered/Resolved]

NARRATIVE: CASE EVENT DATE: 2017
